FAERS Safety Report 6917986-3 (Version None)
Quarter: 2010Q3

REPORT INFORMATION
  Report Type: 
  Country: None (occurrence: None)
  Receive Date: 20100810
  Receipt Date: 20091103
  Transmission Date: 20110219
  Serious: Yes (Other)
  Sender: FDA-Public Use
  Company Number: US-PFIZER INC-2009280486

PATIENT
  Sex: Female
  Weight: 70.748 kg

DRUGS (5)
  1. TOVIAZ [Suspect]
     Indication: URGE INCONTINENCE
     Dosage: 4 MG, 1X/DAY
     Route: 048
     Dates: start: 20090810, end: 20090925
  2. TOPAMAX [Concomitant]
     Dosage: 200 MG, 2X/DAY
  3. PRISTIQ [Concomitant]
     Dosage: 100 MG, 1X/DAY
     Route: 048
  4. TRAZODONE [Concomitant]
     Dosage: 100 MG, UNK
     Route: 048
  5. VALTREX [Concomitant]
     Dosage: 2000 MG, 2X/DAY
     Route: 048

REACTIONS (1)
  - VISION BLURRED [None]
